FAERS Safety Report 9904966 (Version 2)
Quarter: 2014Q1

REPORT INFORMATION
  Report Type: Spontaneous
  Country: US (occurrence: US)
  Receive Date: 20140218
  Receipt Date: 20140218
  Transmission Date: 20141002
  Serious: Yes (Other)
  Sender: FDA-Public Use
  Company Number: US-GILEAD-2011-0048131

PATIENT
  Sex: Male
  Weight: 62.27 kg

DRUGS (12)
  1. LETAIRIS [Suspect]
     Indication: PULMONARY HYPERTENSION
     Dosage: 5 MG, UNK
     Route: 048
     Dates: start: 20110810, end: 20111213
  2. LETAIRIS [Suspect]
     Indication: CONNECTIVE TISSUE DISORDER
  3. LETAIRIS [Suspect]
     Indication: SCLERODERMA
  4. REVATIO [Concomitant]
  5. OXYGEN [Concomitant]
  6. VITAMIN D2 [Concomitant]
  7. LASIX                              /00032601/ [Concomitant]
  8. NEURONTIN [Concomitant]
  9. LORCET-HD [Concomitant]
  10. PROCARDIA XL [Concomitant]
  11. PRILOSEC                           /00661201/ [Concomitant]
  12. COUMADIN                           /00014802/ [Concomitant]

REACTIONS (5)
  - Drug ineffective [Unknown]
  - Asthenia [Unknown]
  - Malaise [Unknown]
  - Fatigue [Unknown]
  - Oedema peripheral [Unknown]
